FAERS Safety Report 24893860 (Version 2)
Quarter: 2025Q1

REPORT INFORMATION
  Report Type: Spontaneous
  Country: RU (occurrence: RU)
  Receive Date: 20250128
  Receipt Date: 20250207
  Transmission Date: 20250408
  Serious: Yes (Death, Life-Threatening, Hospitalization)
  Sender: ACCORD
  Company Number: RU-MLMSERVICE-20250115-PI340118-00218-1

PATIENT
  Age: 59 Year
  Sex: Male

DRUGS (4)
  1. METHOTREXATE [Suspect]
     Active Substance: METHOTREXATE
     Indication: Psoriatic arthropathy
  2. ETORICOXIB [Concomitant]
     Active Substance: ETORICOXIB
  3. OMEPRAZOLE [Concomitant]
     Active Substance: OMEPRAZOLE
  4. METHOTREXATE [Suspect]
     Active Substance: METHOTREXATE
     Indication: Spondylitis

REACTIONS (5)
  - Agranulocytosis [Fatal]
  - Pancytopenia [Fatal]
  - Multiple organ dysfunction syndrome [Fatal]
  - Haemorrhagic disorder [Fatal]
  - Overdose [Fatal]
